FAERS Safety Report 17056853 (Version 1)
Quarter: 2019Q4

REPORT INFORMATION
  Report Type: Spontaneous
  Country: CZ (occurrence: CZ)
  Receive Date: 20191121
  Receipt Date: 20191121
  Transmission Date: 20200122
  Serious: Yes (Life-Threatening, Hospitalization, Other)
  Sender: FDA-Public Use
  Company Number: CZ-CHEPLA-C20193014

PATIENT
  Age: 3 Month
  Sex: Male

DRUGS (2)
  1. GANCICLOVIR. [Suspect]
     Active Substance: GANCICLOVIR
     Indication: CYTOMEGALOVIRUS INFECTION
     Dosage: AT THE AGE OF 3 MONTHS
  2. GANCICLOVIR. [Suspect]
     Active Substance: GANCICLOVIR
     Indication: CYTOMEGALOVIRUS INFECTION
     Dosage: AT THE AGE OF 26 MONTHS

REACTIONS (8)
  - Product use issue [Recovered/Resolved]
  - Neutropenia [Unknown]
  - Failure to thrive [Unknown]
  - Scrotal abscess [Unknown]
  - Sepsis [Unknown]
  - Malnutrition [Unknown]
  - Vomiting [Unknown]
  - Upper respiratory tract infection [Unknown]
